FAERS Safety Report 9555290 (Version 2)
Quarter: 2013Q3

REPORT INFORMATION
  Report Type: Spontaneous
  Country: BR (occurrence: BR)
  Receive Date: 20130926
  Receipt Date: 20130926
  Transmission Date: 20140515
  Serious: Yes (Hospitalization)
  Sender: FDA-Public Use
  Company Number: BR-ELI_LILLY_AND_COMPANY-BR201309002541

PATIENT
  Age: 43 Year
  Sex: Male
  Weight: 68 kg

DRUGS (8)
  1. FORTEO [Suspect]
     Indication: OSTEOPOROSIS
     Dosage: 20 UG, QD
     Route: 058
     Dates: start: 20130701, end: 20130718
  2. FORTEO [Suspect]
     Dosage: 20 UG, QD
     Route: 058
     Dates: start: 20130721, end: 20130729
  3. FORTEO [Suspect]
     Dosage: 20 UG, QD
     Route: 058
  4. ALENIA [Concomitant]
     Indication: ASTHMA
     Dosage: UNK, BID
     Route: 065
  5. CALCIUM CARBONATE [Concomitant]
     Dosage: 500 MG, BID
     Route: 065
  6. CALCIUM [Concomitant]
     Indication: BONE DISORDER
     Dosage: UNK, BID
     Route: 065
  7. VITAMIN B3 [Concomitant]
     Dosage: 1 DF, EACH MORNING
  8. VITAMIN D3 [Concomitant]
     Dosage: 1 DF, EACH EVENING
     Route: 065

REACTIONS (2)
  - Back pain [Unknown]
  - Blood calcium decreased [Unknown]
